FAERS Safety Report 6551533-3 (Version None)
Quarter: 2010Q1

REPORT INFORMATION
  Report Type: 
  Country: None (occurrence: None)
  Receive Date: 20100126
  Receipt Date: 20100113
  Transmission Date: 20100710
  Serious: Yes (Hospitalization)
  Sender: FDA-Public Use
  Company Number: PHHY2010US02226

PATIENT

DRUGS (20)
  1. RECLAST [Suspect]
     Indication: OSTEOPOROSIS
     Dosage: 5 MG/YEAR
     Route: 042
     Dates: start: 20090911
  2. ESTRADIOL [Concomitant]
  3. LEVOTHYROXINE SODIUM [Concomitant]
  4. HCT ^CT-ARZNEIMITTEL^ [Concomitant]
  5. LOTENSIN [Concomitant]
  6. LOMOTIL [Concomitant]
  7. LEXAPRO [Concomitant]
  8. PROMETHAZINE [Concomitant]
  9. NITROGLYCERIN [Concomitant]
  10. HYDREA [Concomitant]
  11. COLESTID [Concomitant]
  12. ASPIRIN [Concomitant]
  13. TYLENOL (CAPLET) [Concomitant]
  14. ANACIN [Concomitant]
  15. VITAMINS [Concomitant]
  16. VITAMIN E [Concomitant]
  17. VITAMIN B COMPLEX CAP [Concomitant]
  18. IMODIUM [Concomitant]
  19. MYLANTA                                 /AUS/ [Concomitant]
  20. MOBIC [Concomitant]

REACTIONS (1)
  - UPPER GASTROINTESTINAL HAEMORRHAGE [None]
